FAERS Safety Report 10063447 (Version 1)
Quarter: 2014Q1

REPORT INFORMATION
  Report Type: Spontaneous
  Country: US (occurrence: None)
  Receive Date: 20140319
  Receipt Date: 20140319
  Transmission Date: 20141002
  Serious: Yes (Other)
  Sender: FDA-Public Use
  Company Number: US-IGSA-GBI1308

PATIENT
  Sex: Male

DRUGS (1)
  1. PROFILNINE SD [Suspect]
     Indication: SURGERY
     Route: 042

REACTIONS (2)
  - Disseminated intravascular coagulation [None]
  - Thrombosis [None]
